FAERS Safety Report 19667574 (Version 4)
Quarter: 2021Q4

REPORT INFORMATION
  Report Type: Spontaneous
  Country: CA (occurrence: CA)
  Receive Date: 20210806
  Receipt Date: 20211110
  Transmission Date: 20220303
  Serious: Yes (Other)
  Sender: FDA-Public Use
  Company Number: CA-GLAXOSMITHKLINE-CA2021149255

PATIENT
  Sex: Female

DRUGS (6)
  1. ZEJULA [Suspect]
     Active Substance: NIRAPARIB
     Indication: Ovarian epithelial cancer
     Dosage: 300 MG, QD
     Route: 048
     Dates: start: 20210524
  2. ZEJULA [Suspect]
     Active Substance: NIRAPARIB
     Indication: Fallopian tube cancer
     Dosage: 200 MG, QD
     Route: 048
     Dates: start: 20210708, end: 20210803
  3. ZEJULA [Suspect]
     Active Substance: NIRAPARIB
     Indication: Malignant peritoneal neoplasm
     Dosage: 100 MG, QD
     Route: 048
     Dates: start: 20210827, end: 20211027
  4. RAMIPRIL [Concomitant]
     Active Substance: RAMIPRIL
     Indication: Product used for unknown indication
     Dosage: UNK
  5. HYDROCHLOROTHIAZIDE [Concomitant]
     Active Substance: HYDROCHLOROTHIAZIDE
     Indication: Product used for unknown indication
     Dosage: UNK
  6. XARELTO [Concomitant]
     Active Substance: RIVAROXABAN
     Indication: Product used for unknown indication
     Dosage: UNK

REACTIONS (3)
  - Renal impairment [Unknown]
  - Malignant neoplasm progression [Unknown]
  - Platelet count decreased [Unknown]
